FAERS Safety Report 6844746-4 (Version None)
Quarter: 2010Q3

REPORT INFORMATION
  Report Type: 
  Country: None (occurrence: None)
  Receive Date: 20100712
  Receipt Date: 20100701
  Transmission Date: 20110219
  Serious: Yes (Death)
  Sender: FDA-Public Use
  Company Number: 2010AC000008

PATIENT
  Age: 58 Year
  Sex: Female

DRUGS (23)
  1. DIGOXIN [Suspect]
     Dosage: .25 MG;QD;PO
     Route: 048
     Dates: start: 20060412, end: 20071001
  2. ESTRATEST H.S. [Suspect]
  3. ARAVA [Concomitant]
  4. PREDNISONE [Concomitant]
  5. HYDROXYCHLORQUINE [Concomitant]
  6. MELOXICAM [Concomitant]
  7. LEFLUNOMIDE [Concomitant]
  8. BENICAR [Concomitant]
  9. DICLOFENAC SODIUM [Concomitant]
  10. PLAQUENIL [Concomitant]
  11. PREDNISONE [Concomitant]
  12. ESTRATEST [Concomitant]
  13. ESTRATEST [Concomitant]
  14. DICYCLOPHENAC [Concomitant]
  15. METHOTREXATE [Concomitant]
  16. LEVAQUIN [Concomitant]
  17. ENTEX CAP [Concomitant]
  18. ASPIRIN [Concomitant]
  19. VOLTAREN [Concomitant]
  20. ALPRAZOLAM [Concomitant]
  21. GUAIFEN [Concomitant]
  22. FLUCONAZOLE [Concomitant]
  23. NEO-POLYMYXIN [Concomitant]

REACTIONS (10)
  - ANXIETY [None]
  - CARDIOVASCULAR DISORDER [None]
  - CERUMEN IMPACTION [None]
  - DEAFNESS [None]
  - EAR PAIN [None]
  - ECONOMIC PROBLEM [None]
  - MULTIPLE INJURIES [None]
  - OEDEMA PERIPHERAL [None]
  - PAIN [None]
  - THERAPEUTIC AGENT TOXICITY [None]
